FAERS Safety Report 25038295 (Version 1)
Quarter: 2025Q1

REPORT INFORMATION
  Report Type: Spontaneous
  Country: US (occurrence: US)
  Receive Date: 20250304
  Receipt Date: 20250304
  Transmission Date: 20250409
  Serious: No
  Sender: PFIZER
  Company Number: US-PFIZER INC-PV202500024800

PATIENT
  Age: 62 Year
  Sex: Female

DRUGS (2)
  1. SKELAXIN [Suspect]
     Active Substance: METAXALONE
     Dates: start: 2017
  2. VALSARTAN [Concomitant]
     Active Substance: VALSARTAN

REACTIONS (1)
  - Urticaria [Not Recovered/Not Resolved]
